FAERS Safety Report 5780397-0 (Version None)
Quarter: 2008Q2

REPORT INFORMATION
  Report Type: 
  Country: None (occurrence: None)
  Receive Date: 20080620
  Receipt Date: 20080611
  Transmission Date: 20081010
  Serious: Yes (Hospitalization)
  Sender: FDA-Public Use
  Company Number: US-ABBOTT-08P-163-0456750-00

PATIENT
  Sex: Female
  Weight: 62.652 kg

DRUGS (6)
  1. HUMIRA [Suspect]
     Indication: RHEUMATOID ARTHRITIS
     Route: 050
     Dates: start: 20050101, end: 20080509
  2. PREDNISONE TAB [Concomitant]
     Indication: RHEUMATOID ARTHRITIS
     Route: 048
     Dates: start: 20010101
  3. VICODIN [Concomitant]
     Indication: PAIN
     Route: 048
  4. VICODIN [Concomitant]
     Route: 048
  5. LEVOTHYROXINE SODIUM [Concomitant]
     Indication: THYROID FUNCTION TEST ABNORMAL
     Route: 048
     Dates: start: 19930101
  6. FOLIC ACID [Concomitant]
     Indication: DRUG USE FOR UNKNOWN INDICATION
     Route: 048
     Dates: start: 19880101

REACTIONS (2)
  - CELLULITIS [None]
  - RASH MACULAR [None]
